FAERS Safety Report 14820839 (Version 17)
Quarter: 2018Q4

REPORT INFORMATION
  Report Type: Report from Study
  Country: CO (occurrence: CO)
  Receive Date: 20180427
  Receipt Date: 20181024
  Transmission Date: 20190204
  Serious: Yes (Death, Hospitalization, Other)
  Sender: FDA-Public Use
  Company Number: CO-JNJFOC-20180340249

PATIENT
  Age: 48 Year
  Sex: Male
  Weight: 68 kg

DRUGS (8)
  1. METHYLPREDNISOLONE. [Concomitant]
     Active Substance: METHYLPREDNISOLONE
     Indication: PREMEDICATION
     Route: 048
  2. PARACETAMOL [Concomitant]
     Active Substance: ACETAMINOPHEN
     Indication: PREMEDICATION
     Route: 048
  3. DIPHENHYDRAMINE. [Concomitant]
     Active Substance: DIPHENHYDRAMINE
     Indication: PREMEDICATION
     Route: 048
  4. DEXAMETHASONE. [Concomitant]
     Active Substance: DEXAMETHASONE
     Indication: PLASMA CELL MYELOMA
     Route: 042
     Dates: start: 20180615
  5. DARZALEX [Suspect]
     Active Substance: DARATUMUMAB
     Indication: PLASMA CELL MYELOMA
     Route: 042
     Dates: start: 20180326, end: 20180524
  6. LENALIDOMIDE [Concomitant]
     Active Substance: LENALIDOMIDE
     Indication: PLASMA CELL MYELOMA
     Route: 048
     Dates: start: 20180615
  7. DARZALEX [Suspect]
     Active Substance: DARATUMUMAB
     Indication: PLASMA CELL MYELOMA
     Route: 042
     Dates: start: 20180615, end: 20180824
  8. IBANDRONIC ACID. [Concomitant]
     Active Substance: IBANDRONIC ACID
     Indication: PLASMA CELL MYELOMA
     Route: 042
     Dates: start: 20180804

REACTIONS (34)
  - Infusion related reaction [Recovered/Resolved]
  - Weight decreased [Unknown]
  - Petechiae [Not Recovered/Not Resolved]
  - Incoherent [Not Recovered/Not Resolved]
  - Hypertensive crisis [Recovering/Resolving]
  - Anxiety [Unknown]
  - Hypertension [Recovered/Resolved]
  - Influenza [Recovered/Resolved]
  - Hallucination [Recovering/Resolving]
  - Bradycardia [Unknown]
  - Haemoglobin decreased [Not Recovered/Not Resolved]
  - Cardio-respiratory arrest [Fatal]
  - Chills [Unknown]
  - Transfusion [Recovering/Resolving]
  - Thrombocytopenia [Not Recovered/Not Resolved]
  - Mental disorder [Recovering/Resolving]
  - Renal impairment [Recovering/Resolving]
  - Haemoglobin decreased [Not Recovered/Not Resolved]
  - Chest pain [Unknown]
  - Arthralgia [Not Recovered/Not Resolved]
  - Blood immunoglobulin G increased [Unknown]
  - Aggression [Not Recovered/Not Resolved]
  - Disorientation [Not Recovered/Not Resolved]
  - Hypercalcaemia [Recovering/Resolving]
  - Thrombocytopenia [Recovering/Resolving]
  - Pyrexia [Not Recovered/Not Resolved]
  - Pain in extremity [Not Recovered/Not Resolved]
  - Septic shock [Fatal]
  - Electrolyte imbalance [Not Recovered/Not Resolved]
  - Azotaemia [Recovering/Resolving]
  - Anaemia [Recovering/Resolving]
  - Neutropenia [Not Recovered/Not Resolved]
  - Insomnia [Not Recovered/Not Resolved]
  - Epistaxis [Recovering/Resolving]

NARRATIVE: CASE EVENT DATE: 2018
